FAERS Safety Report 12337602 (Version 2)
Quarter: 2016Q2

REPORT INFORMATION
  Report Type: Other
  Country: IE (occurrence: IE)
  Receive Date: 20160505
  Receipt Date: 20160524
  Transmission Date: 20160815
  Serious: Yes (Other)
  Sender: FDA-Public Use
  Company Number: IE-APOTEX-2016AP008221

PATIENT
  Sex: Female

DRUGS (1)
  1. PAXIL [Suspect]
     Active Substance: PAROXETINE HYDROCHLORIDE
     Indication: DEPRESSION
     Dosage: 30 MG, BID, TO DATE
     Route: 048
     Dates: start: 20121129

REACTIONS (4)
  - Insomnia [Unknown]
  - Skin burning sensation [Unknown]
  - Depression [Unknown]
  - Menstrual disorder [Unknown]
